FAERS Safety Report 12307456 (Version 1)
Quarter: 2016Q2

REPORT INFORMATION
  Report Type: Spontaneous
  Country: RU (occurrence: RU)
  Receive Date: 20160426
  Receipt Date: 20160426
  Transmission Date: 20160815
  Serious: Yes (Other)
  Sender: FDA-Public Use
  Company Number: RU-BAYER-2016-078946

PATIENT
  Sex: Female

DRUGS (2)
  1. VISANNA [Suspect]
     Active Substance: DIENOGEST
     Indication: ADENOMYOSIS
     Dosage: UNK
     Route: 048
  2. QLAIRA [Suspect]
     Active Substance: DIENOGEST\ESTRADIOL VALERATE
     Indication: ADENOMYOSIS
     Dosage: UNK
     Route: 048

REACTIONS (2)
  - Off label use [None]
  - Takayasu^s arteritis [None]

NARRATIVE: CASE EVENT DATE: 201602
